FAERS Safety Report 23325756 (Version 1)
Quarter: 2023Q4

REPORT INFORMATION
  Report Type: Spontaneous
  Country: US (occurrence: None)
  Receive Date: 20231220
  Receipt Date: 20231220
  Transmission Date: 20240110
  Serious: Yes (Hospitalization, Other)
  Sender: FDA-Public Use
  Company Number: None

PATIENT
  Sex: Male

DRUGS (3)
  1. ADYNOVATE [Suspect]
     Active Substance: ANTIHEMOPHILIC FACTOR, HUMAN RECOMBINANT
     Indication: Factor V deficiency
     Dosage: OTHER QUANTITY : 1450 UNITS;?FREQUENCY : AS DIRECTED;? INFUSE 3450 UNITS (3105-375) SLOW IV PUSH EVE
     Route: 042
     Dates: start: 202212
  2. ADYNOVATE [Suspect]
     Active Substance: ANTIHEMOPHILIC FACTOR, HUMAN RECOMBINANT
     Indication: Factor V deficiency
     Dosage: OTHER QUANTITY : 2000 UNITS;?FREQUENCY : AS DIRECTED;? INFUSE 3450 UNITS (3105-375) SLOW IV PUSH EVE
     Route: 042
     Dates: start: 202212
  3. TRIUMEQ [Concomitant]
     Active Substance: ABACAVIR SULFATE\DOLUTEGRAVIR SODIUM\LAMIVUDINE

REACTIONS (2)
  - Joint microhaemorrhage [None]
  - Haemorrhage [None]

NARRATIVE: CASE EVENT DATE: 20231209
